FAERS Safety Report 6604895-2 (Version None)
Quarter: 2010Q1

REPORT INFORMATION
  Report Type: 
  Country: None (occurrence: None)
  Receive Date: 20100226
  Receipt Date: 20100218
  Transmission Date: 20100710
  Serious: Yes (Hospitalization)
  Sender: FDA-Public Use
  Company Number: B0633790A

PATIENT
  Age: 18 Year
  Sex: Female

DRUGS (4)
  1. LAMOTRIGINE [Suspect]
     Indication: EPILEPSY
     Dosage: 5MG PER DAY
     Route: 065
  2. AMPICILLIN [Suspect]
     Route: 065
  3. OXCARBAZEPINE [Suspect]
     Route: 065
  4. ROVAMYCINE [Concomitant]
     Route: 065

REACTIONS (18)
  - ARTHRALGIA [None]
  - ASTHENIA [None]
  - BLISTER [None]
  - DRUG ERUPTION [None]
  - DRUG HYPERSENSITIVITY [None]
  - GENERALISED ERYTHEMA [None]
  - INFECTIOUS MONONUCLEOSIS [None]
  - LEUKOCYTOSIS [None]
  - LUDWIG ANGINA [None]
  - LYMPHADENOPATHY [None]
  - MYALGIA [None]
  - NIKOLSKY'S SIGN [None]
  - PAIN [None]
  - PAIN OF SKIN [None]
  - PHARYNGITIS [None]
  - PYREXIA [None]
  - RASH MACULO-PAPULAR [None]
  - SKIN LESION [None]
